FAERS Safety Report 5355829-2 (Version None)
Quarter: 2007Q2

REPORT INFORMATION
  Report Type: 
  Country: None (occurrence: None)
  Receive Date: 20070530
  Receipt Date: 20061009
  Transmission Date: 20071010
  Serious: Yes (Hospitalization, Other)
  Sender: FDA-Public Use
  Company Number: US200610001571

PATIENT
  Age: 41 Year
  Sex: Male
  Weight: 108.8 kg

DRUGS (3)
  1. ZYPREXA [Suspect]
     Dosage: SEE IMAGE
     Dates: start: 19960101, end: 19980101
  2. ZYPREXA [Suspect]
     Dosage: SEE IMAGE
     Dates: start: 19990201, end: 20001201
  3. FLUOXETINE [Concomitant]

REACTIONS (9)
  - BLINDNESS [None]
  - DIABETES MELLITUS [None]
  - DIABETIC KETOACIDOSIS [None]
  - HYPERGLYCAEMIA [None]
  - HYPERTENSION [None]
  - HYPOGLYCAEMIA [None]
  - IMPAIRED HEALING [None]
  - OEDEMA PERIPHERAL [None]
  - SUICIDE ATTEMPT [None]
